FAERS Safety Report 25941006 (Version 2)
Quarter: 2025Q4

REPORT INFORMATION
  Report Type: Report from Study
  Country: US (occurrence: US)
  Receive Date: 20251020
  Receipt Date: 20251111
  Transmission Date: 20260118
  Serious: No
  Sender: MALLINCKRODT
  Company Number: US-MALLINCKRODT-MNK202506418

PATIENT
  Age: 76 Year
  Sex: Female

DRUGS (5)
  1. CORTICOTROPIN [Suspect]
     Active Substance: CORTICOTROPIN
     Indication: Ocular pemphigoid
     Route: 030
     Dates: start: 202411
  2. CORTICOTROPIN [Suspect]
     Active Substance: CORTICOTROPIN
     Indication: Sarcoidosis
     Dosage: 80 UNITS
     Route: 058
     Dates: start: 20250904, end: 2025
  3. BACLOFEN [Concomitant]
     Active Substance: BACLOFEN
     Dosage: UNKNOWN
  4. PERCOCET [Concomitant]
     Active Substance: ACETAMINOPHEN\OXYCODONE HYDROCHLORIDE
     Dosage: UNKNOWN (2.5-325 MG)
  5. SEROQUEL [Concomitant]
     Active Substance: QUETIAPINE FUMARATE
     Dosage: UNKNOWN

REACTIONS (5)
  - Dyspnoea [Unknown]
  - Illness [Not Recovered/Not Resolved]
  - Rash [Unknown]
  - Injection site discolouration [Unknown]
  - Inappropriate schedule of product administration [Unknown]

NARRATIVE: CASE EVENT DATE: 20250101
